FAERS Safety Report 7153996-1 (Version None)
Quarter: 2010Q4

REPORT INFORMATION
  Report Type: 
  Country: None (occurrence: None)
  Receive Date: 20101124
  Receipt Date: 20101110
  Transmission Date: 20110411
  Serious: Yes (Death, Hospitalization, Other)
  Sender: FDA-Public Use
  Company Number: 2010004968

PATIENT
  Age: 71 Year
  Sex: Female

DRUGS (8)
  1. TARCEVA [Suspect]
     Indication: NON-SMALL CELL LUNG CANCER METASTATIC
     Dosage: (150 MG,QD), ORAL
     Route: 048
     Dates: start: 20100816, end: 20100910
  2. TEGRETOL [Concomitant]
  3. BISOPROLOL FUMARATE [Concomitant]
  4. PANTOPRAZOLE SODIUM [Concomitant]
  5. DEXAMETHASONE [Concomitant]
  6. ALLOPURINOL [Concomitant]
  7. METFORMIN HCL [Concomitant]
  8. NACL KAPSELN [Concomitant]

REACTIONS (8)
  - BLOOD SODIUM DECREASED [None]
  - BRADYCARDIA [None]
  - DECREASED APPETITE [None]
  - GENERAL PHYSICAL HEALTH DETERIORATION [None]
  - HYPOCALCAEMIA [None]
  - MALIGNANT NEOPLASM PROGRESSION [None]
  - NON-SMALL CELL LUNG CANCER METASTATIC [None]
  - RENAL IMPAIRMENT [None]
